FAERS Safety Report 11593229 (Version 5)
Quarter: 2016Q1

REPORT INFORMATION
  Report Type: Spontaneous
  Country: US (occurrence: US)
  Receive Date: 20151005
  Receipt Date: 20160322
  Transmission Date: 20160525
  Serious: Yes (Other)
  Sender: FDA-Public Use
  Company Number: US-CELGENEUS-USA-2015096128

PATIENT
  Sex: Male
  Weight: 59.02 kg

DRUGS (4)
  1. REVLIMID [Suspect]
     Active Substance: LENALIDOMIDE
     Route: 048
     Dates: start: 20150901
  2. DEXAMETHASONE. [Suspect]
     Active Substance: DEXAMETHASONE
     Indication: PRODUCT USED FOR UNKNOWN INDICATION
     Route: 065
  3. REVLIMID [Suspect]
     Active Substance: LENALIDOMIDE
     Indication: PLASMA CELL MYELOMA
     Route: 048
     Dates: start: 201508
  4. REVLIMID [Suspect]
     Active Substance: LENALIDOMIDE
     Route: 048
     Dates: start: 201512, end: 20160223

REACTIONS (6)
  - Decreased appetite [Unknown]
  - Hypoaesthesia [Unknown]
  - Fatigue [Unknown]
  - Adverse drug reaction [Unknown]
  - Disturbance in attention [Unknown]
  - Confusional state [Unknown]

NARRATIVE: CASE EVENT DATE: 2015
